FAERS Safety Report 21281094 (Version 1)
Quarter: 2022Q3

REPORT INFORMATION
  Report Type: Spontaneous
  Country: US (occurrence: US)
  Receive Date: 20220901
  Receipt Date: 20220901
  Transmission Date: 20221026
  Serious: Yes (Other)
  Sender: FDA-Public Use
  Company Number: None

PATIENT
  Age: 75 Year
  Sex: Male

DRUGS (3)
  1. VALIUM [Suspect]
     Active Substance: DIAZEPAM
     Indication: Anxiety
     Dosage: PATIENT WAS PRESCRIBED 5MG BY MOUTH THREE TIMES DAILY AS NEEDED. PER PATIENT HE GENERALLY TAKES 2...
     Route: 050
     Dates: start: 20220814
  2. VALIUM [Suspect]
     Active Substance: DIAZEPAM
  3. DILTIAZEM [Concomitant]
     Active Substance: DILTIAZEM
     Indication: Atrial fibrillation

REACTIONS (15)
  - Dizziness [Not Recovered/Not Resolved]
  - Nervousness [Not Recovered/Not Resolved]
  - Feeling abnormal [Not Recovered/Not Resolved]
  - Depressed mood [Not Recovered/Not Resolved]
  - Sneezing [Not Recovered/Not Resolved]
  - Rhinorrhoea [Not Recovered/Not Resolved]
  - Nasal congestion [Not Recovered/Not Resolved]
  - Drug ineffective [Unknown]
  - Anxiety [Unknown]
  - Heart rate irregular [Unknown]
  - Atrial fibrillation [Unknown]
  - Fatigue [Unknown]
  - Somnolence [Unknown]
  - Abnormal dreams [Unknown]
  - Flushing [Unknown]
